FAERS Safety Report 5688706-8 (Version None)
Quarter: 2008Q1

REPORT INFORMATION
  Report Type: 
  Country: None (occurrence: None)
  Receive Date: 20080331
  Receipt Date: 20080317
  Transmission Date: 20080703
  Serious: Yes (Hospitalization)
  Sender: FDA-Public Use
  Company Number: US-MERCK-0803USA02866

PATIENT
  Age: 80 Year
  Sex: Male

DRUGS (8)
  1. FOSAMAX [Suspect]
     Indication: PROPHYLAXIS
     Route: 048
     Dates: start: 20080201, end: 20080229
  2. INSULIN [Concomitant]
     Route: 042
  3. VYTORIN [Concomitant]
     Route: 048
  4. DIOVAN [Concomitant]
     Route: 065
  5. PROSCAR [Concomitant]
     Route: 048
  6. VITAMINS (UNSPECIFIED) [Concomitant]
     Route: 065
  7. MINERALS (UNSPECIFIED) [Concomitant]
     Route: 065
  8. FOSAMAX PLUS D [Suspect]
     Indication: PROPHYLAXIS
     Route: 048
     Dates: start: 20080101, end: 20080229

REACTIONS (2)
  - MENINGITIS ASEPTIC [None]
  - OEDEMA PERIPHERAL [None]
